FAERS Safety Report 5447601-X (Version None)
Quarter: 2007Q3

REPORT INFORMATION
  Report Type: 
  Country: None (occurrence: None)
  Receive Date: 20070905
  Receipt Date: 20070905
  Transmission Date: 20080115
  Serious: Yes (Other)
  Sender: FDA-Public Use
  Company Number: None

PATIENT
  Sex: Male

DRUGS (2)
  1. PREDNISONE [Suspect]
     Indication: GLOMERULONEPHRITIS MEMBRANOPROLIFERATIVE
     Dosage: 60 MG DAILY
  2. HALDOL [Suspect]
     Indication: PSYCHOTIC DISORDER
     Dates: start: 20070727, end: 20070727

REACTIONS (2)
  - OCULOGYRIC CRISIS [None]
  - PSYCHOTIC DISORDER [None]
